FAERS Safety Report 10399574 (Version 1)
Quarter: 2014Q3

REPORT INFORMATION
  Report Type: Spontaneous
  Country: IN (occurrence: None)
  Receive Date: 20140819
  Receipt Date: 20140819
  Transmission Date: 20150326
  Serious: Yes (Hospitalization, Other)
  Sender: FDA-Public Use
  Company Number: AUR-APL-2014-08848

PATIENT
  Age: 46 Year
  Sex: Female
  Weight: 54 kg

DRUGS (2)
  1. MIRTAZAPINE TABLETS BP 7.5 MG (MIRTAZAPINE) FILM-COATED TABLET, 7.5MG? [Suspect]
     Active Substance: MIRTAZAPINE
     Indication: SLEEP DISORDER
     Dosage: 7.5 MG, ONCE A DAY, UNKNOWN
  2. CLONAZEPAM. [Concomitant]
     Active Substance: CLONAZEPAM

REACTIONS (13)
  - Restlessness [None]
  - Memory impairment [None]
  - Disturbance in attention [None]
  - Delirium [None]
  - Affect lability [None]
  - Disorientation [None]
  - Sleep disorder [None]
  - Incoherent [None]
  - Confusional state [None]
  - Hyponatraemia [None]
  - Agitation [None]
  - Irritability [None]
  - Off label use [None]
